FAERS Safety Report 19094432 (Version 2)
Quarter: 2021Q2

REPORT INFORMATION
  Report Type: Spontaneous
  Country: US (occurrence: US)
  Receive Date: 20210406
  Receipt Date: 20210407
  Transmission Date: 20210717
  Serious: Yes (Other)
  Sender: FDA-Public Use
  Company Number: US-CELGENEUS-USA-20210308321

PATIENT
  Age: 69 Year
  Sex: Female

DRUGS (2)
  1. THALOMID [Suspect]
     Active Substance: THALIDOMIDE
     Indication: OFF LABEL USE
  2. THALOMID [Suspect]
     Active Substance: THALIDOMIDE
     Indication: HEREDITARY HAEMORRHAGIC TELANGIECTASIA
     Dosage: 50 MILLIGRAM
     Route: 048
     Dates: start: 202103

REACTIONS (6)
  - Abdominal distension [Unknown]
  - Feeling abnormal [Unknown]
  - Eructation [Unknown]
  - Neuropathy peripheral [Unknown]
  - Back pain [Unknown]
  - Palpitations [Unknown]

NARRATIVE: CASE EVENT DATE: 202103
